FAERS Safety Report 5143312-9 (Version None)
Quarter: 2006Q4

REPORT INFORMATION
  Report Type: 
  Country: None (occurrence: None)
  Receive Date: 20061030
  Receipt Date: 20061018
  Transmission Date: 20070319
  Serious: Yes (Other)
  Sender: FDA-Public Use
  Company Number: 2006127971

PATIENT
  Age: 66 Year
  Sex: Female
  Weight: 60.782 kg

DRUGS (5)
  1. NORVASC [Suspect]
     Indication: CEREBROVASCULAR ACCIDENT
     Dosage: (10 MG)
     Dates: start: 20010101
  2. LIPITOR [Suspect]
     Indication: CEREBROVASCULAR ACCIDENT
     Dosage: (10 MG)
     Dates: start: 20010101
  3. CADUET [Suspect]
  4. ANTI-ASTHMATICS (ANTI-ASTHMATICS) [Concomitant]
  5. ASPIRIN [Concomitant]

REACTIONS (1)
  - URINARY INCONTINENCE [None]
